FAERS Safety Report 20710202 (Version 1)
Quarter: 2022Q2

REPORT INFORMATION
  Report Type: Spontaneous
  Country: GB (occurrence: GB)
  Receive Date: 20220414
  Receipt Date: 20220414
  Transmission Date: 20220720
  Serious: Yes (Other)
  Sender: FDA-Public Use
  Company Number: GB-BRACCO-2022GB01403

PATIENT
  Age: 55 Year
  Sex: Male

DRUGS (2)
  1. IOPAMIDOL [Suspect]
     Active Substance: IOPAMIDOL
     Indication: Coronary angioplasty
     Dosage: UNK
     Route: 022
  2. NIFEDIPINE [Concomitant]
     Active Substance: NIFEDIPINE
     Indication: Angina pectoris

REACTIONS (3)
  - Arteriospasm coronary [Recovered/Resolved]
  - Chest pain [Recovered/Resolved]
  - Electrocardiogram ST segment elevation [Recovered/Resolved]
